FAERS Safety Report 4551537-6 (Version None)
Quarter: 2005Q1

REPORT INFORMATION
  Report Type: 
  Country: None (occurrence: None)
  Receive Date: 20050110
  Receipt Date: 20050110
  Transmission Date: 20050727
  Serious: Yes (Hospitalization)
  Sender: FDA-Public Use
  Company Number: None

PATIENT
  Age: 62 Year
  Sex: Female
  Weight: 57.1532 kg

DRUGS (1)
  1. SANDOSTATIN LAR [Suspect]
     Indication: ACROMEGALY
     Dosage: 40 MG   ONCE MONTHLY   INTRAMUSCULAR
     Route: 030
     Dates: start: 20040415, end: 20040928

REACTIONS (8)
  - ABDOMINAL DISTENSION [None]
  - COLITIS ISCHAEMIC [None]
  - DISCOMFORT [None]
  - ERYTHEMA [None]
  - HYPERTENSION [None]
  - LARGE INTESTINAL ULCER [None]
  - RECTAL HAEMORRHAGE [None]
  - ULCER [None]
